FAERS Safety Report 6623708-6 (Version None)
Quarter: 2010Q1

REPORT INFORMATION
  Report Type: 
  Country: None (occurrence: None)
  Receive Date: 20100310
  Receipt Date: 20091110
  Transmission Date: 20100710
  Serious: Yes (Other)
  Sender: FDA-Public Use
  Company Number: US-BIOGENIDEC-2009BI036978

PATIENT
  Sex: Female

DRUGS (3)
  1. AVONEX [Suspect]
     Indication: MULTIPLE SCLEROSIS
     Route: 030
     Dates: end: 20020329
  2. AVONEX [Suspect]
     Route: 030
     Dates: start: 20060330, end: 20070101
  3. AVONEX [Suspect]
     Route: 030
     Dates: start: 20080618

REACTIONS (1)
  - ABORTION SPONTANEOUS [None]
